FAERS Safety Report 14628279 (Version 1)
Quarter: 2018Q1

REPORT INFORMATION
  Report Type: Spontaneous
  Country: US (occurrence: US)
  Receive Date: 20180312
  Receipt Date: 20180312
  Transmission Date: 20180509
  Serious: No
  Sender: FDA-Public Use
  Company Number: US-ALLERGAN-1765136US

PATIENT
  Age: 82 Year
  Sex: Female

DRUGS (2)
  1. ESTRACE [Suspect]
     Active Substance: ESTRADIOL
     Indication: URETHRAL CARUNCLE
     Dosage: UNK, BID
     Route: 061
     Dates: end: 201711
  2. REFRESH TEARS [Concomitant]
     Active Substance: CARBOXYMETHYLCELLULOSE SODIUM
     Indication: DRY EYE
     Route: 047

REACTIONS (10)
  - Burning sensation [Unknown]
  - Nipple pain [Recovered/Resolved]
  - Malaise [Not Recovered/Not Resolved]
  - Rash erythematous [Recovered/Resolved]
  - Tremor [Not Recovered/Not Resolved]
  - Urticaria [Unknown]
  - Off label use [Unknown]
  - Hypersensitivity [Unknown]
  - Speech disorder [Not Recovered/Not Resolved]
  - Nodule [Not Recovered/Not Resolved]
